FAERS Safety Report 5416283-5 (Version None)
Quarter: 2007Q3

REPORT INFORMATION
  Report Type: 
  Country: None (occurrence: None)
  Receive Date: 20070718
  Receipt Date: 20070221
  Transmission Date: 20080115
  Serious: Yes (Hospitalization, Other)
  Sender: FDA-Public Use
  Company Number: 2007014822

PATIENT
  Age: 31 Year
  Sex: Male

DRUGS (2)
  1. CELEBREX [Suspect]
     Indication: MUSCULOSKELETAL PAIN
     Dosage: 200 MG (200 MG, 1 IN 1 D)
     Dates: start: 19990406, end: 20030101
  2. BEXTRA [Suspect]
     Indication: JOINT SPRAIN
     Dosage: 10 MG (10 MG, 1 IN 1 D)
     Dates: start: 20050227, end: 20050423

REACTIONS (1)
  - BLOOD PRESSURE INCREASED [None]
